FAERS Safety Report 5170529-X (Version None)
Quarter: 2006Q4

REPORT INFORMATION
  Report Type: 
  Country: None (occurrence: None)
  Receive Date: 20061205
  Receipt Date: 20061121
  Transmission Date: 20070319
  Serious: Yes (Death)
  Sender: FDA-Public Use
  Company Number: 2006144165

PATIENT
  Age: 75 Year
  Sex: Male

DRUGS (1)
  1. LINEZOLID [Suspect]
     Indication: STAPHYLOCOCCAL INFECTION

REACTIONS (2)
  - BLOOD CULTURE POSITIVE [None]
  - INTENTIONAL DRUG MISUSE [None]
